FAERS Safety Report 12553067 (Version 2)
Quarter: 2017Q1

REPORT INFORMATION
  Report Type: Spontaneous
  Country: US (occurrence: US)
  Receive Date: 20160713
  Receipt Date: 20170222
  Transmission Date: 20170428
  Serious: No
  Sender: FDA-Public Use
  Company Number: US-AMNEAL PHARMACEUTICALS-2016AMN00340

PATIENT
  Sex: Female
  Weight: 81.63 kg

DRUGS (1)
  1. METFORMIN HYDROCHLORIDE. [Suspect]
     Active Substance: METFORMIN HYDROCHLORIDE
     Indication: TYPE 2 DIABETES MELLITUS
     Dosage: FOUR TABLETS A DAY
     Route: 048
     Dates: start: 2013

REACTIONS (3)
  - Dyskinesia [Unknown]
  - Dizziness [Unknown]
  - Product formulation issue [Unknown]
